FAERS Safety Report 12473745 (Version 1)
Quarter: 2016Q2

REPORT INFORMATION
  Report Type: Spontaneous
  Country: US (occurrence: US)
  Receive Date: 20160616
  Receipt Date: 20160616
  Transmission Date: 20160815
  Serious: Yes (Hospitalization)
  Sender: FDA-Public Use
  Company Number: US-SA-2016SA109701

PATIENT
  Age: 91 Year
  Sex: Female

DRUGS (5)
  1. EPINEPHRINE. [Suspect]
     Active Substance: EPINEPHRINE
     Indication: VENTRICULAR HYPOKINESIA
     Route: 040
  2. VECURONIUM [Concomitant]
     Active Substance: VECURONIUM BROMIDE
     Indication: ANAESTHESIA
  3. ISOFLURANE. [Concomitant]
     Active Substance: ISOFLURANE
     Indication: ANAESTHESIA
     Dosage: INFUSION
     Route: 042
  4. REMIFENTANIL [Concomitant]
     Active Substance: REMIFENTANIL
     Indication: ANAESTHESIA
     Dosage: INFUSION
     Route: 042
  5. PHENYLEPHRINE [Concomitant]
     Active Substance: PHENYLEPHRINE\PHENYLEPHRINE HYDROCHLORIDE
     Indication: VASCULAR RESISTANCE SYSTEMIC
     Dosage: INFUSION
     Route: 042

REACTIONS (8)
  - Mean arterial pressure decreased [Recovered/Resolved]
  - Systolic anterior motion of mitral valve [Recovered/Resolved]
  - Mitral valve incompetence [Recovered/Resolved]
  - Cardiac output decreased [Recovered/Resolved]
  - Left ventricle outflow tract obstruction [Recovered/Resolved]
  - Therapeutic response decreased [Unknown]
  - Pulmonary hypertension [Recovered/Resolved]
  - Hypotension [Recovered/Resolved]
